FAERS Safety Report 8990446 (Version 1)
Quarter: 2012Q4

REPORT INFORMATION
  Report Type: 
  Country: IN (occurrence: IN)
  Receive Date: 20121228
  Receipt Date: 20121228
  Transmission Date: 20130627
  Serious: Yes (Other)
  Sender: FDA-Public Use
  Company Number: IN-ALLERGAN-1217994US

PATIENT
  Age: 62 Year
  Sex: Male

DRUGS (1)
  1. OZURDEX [Suspect]
     Indication: DIABETIC MACULAR OEDEMA
     Dosage: 0.7 mg, single
     Route: 031

REACTIONS (2)
  - Posterior capsule rupture [Recovered/Resolved]
  - Complication of device insertion [Recovered/Resolved]
